FAERS Safety Report 7215069-9 (Version None)
Quarter: 2011Q1

REPORT INFORMATION
  Report Type: 
  Country: None (occurrence: None)
  Receive Date: 20110107
  Receipt Date: 20100804
  Transmission Date: 20110831
  Serious: No
  Sender: FDA-Public Use
  Company Number: A0874023A

PATIENT
  Age: 56 Year
  Sex: Female

DRUGS (16)
  1. PROZAC [Concomitant]
  2. SINGULAIR [Concomitant]
  3. COREG [Concomitant]
  4. ESTROGEN WITH TESTOSTERONE [Concomitant]
  5. ASPIRIN [Concomitant]
  6. PLAVIX [Concomitant]
  7. THYROID [Concomitant]
  8. EXFORGE [Concomitant]
  9. METANX [Concomitant]
  10. LYRICA [Concomitant]
  11. ZOCOR [Concomitant]
  12. LOVAZA [Suspect]
     Indication: SPINAL CORD INJURY
     Dosage: 1G FOUR TIMES PER DAY
     Route: 048
     Dates: start: 20090901, end: 20100712
  13. OPANA (OXYMORPHONE HCL) [Concomitant]
  14. PROVIGIL [Concomitant]
  15. NEURONTIN [Concomitant]
  16. VITAMIN D3 [Concomitant]

REACTIONS (4)
  - VOMITING [None]
  - FOOD CRAVING [None]
  - DECREASED APPETITE [None]
  - NAUSEA [None]
